FAERS Safety Report 8026921-9 (Version None)
Quarter: 2012Q1

REPORT INFORMATION
  Report Type: 
  Country: None (occurrence: None)
  Receive Date: 20120106
  Receipt Date: 20111227
  Transmission Date: 20120608
  Serious: Yes (Hospitalization)
  Sender: FDA-Public Use
  Company Number: US-JNJFOC-20111006974

PATIENT
  Sex: Male
  Weight: 63 kg

DRUGS (3)
  1. METHOTREXATE [Concomitant]
  2. REMICADE [Suspect]
     Route: 042
     Dates: start: 20111020
  3. REMICADE [Suspect]
     Indication: CROHN'S DISEASE
     Route: 042
     Dates: start: 20111005

REACTIONS (5)
  - PYODERMA GANGRENOSUM [None]
  - CROHN'S DISEASE [None]
  - PNEUMOTHORAX [None]
  - HYPOALBUMINAEMIA [None]
  - HAEMORRHAGIC ANAEMIA [None]
